FAERS Safety Report 5812732-9 (Version None)
Quarter: 2008Q3

REPORT INFORMATION
  Report Type: 
  Country: None (occurrence: None)
  Receive Date: 20080714
  Receipt Date: 20080714
  Transmission Date: 20090109
  Serious: Yes (Life-Threatening, Hospitalization, Other)
  Sender: FDA-Public Use
  Company Number: None

PATIENT
  Age: 74 Year
  Sex: Female
  Weight: 81.6475 kg

DRUGS (1)
  1. DIGETEK  DON'T RECALL  DON'T RECALL [Suspect]
     Indication: CARDIAC DISORDER
     Dates: start: 19961102, end: 20080402

REACTIONS (4)
  - CARDIOACTIVE DRUG LEVEL INCREASED [None]
  - DIZZINESS [None]
  - FATIGUE [None]
  - LOSS OF CONSCIOUSNESS [None]
